FAERS Safety Report 24188990 (Version 1)
Quarter: 2024Q3

REPORT INFORMATION
  Report Type: Spontaneous
  Country: US (occurrence: US)
  Receive Date: 20240808
  Receipt Date: 20240808
  Transmission Date: 20241016
  Serious: No
  Sender: OTSUKA
  Company Number: US-OTSUKA-2023_023304

PATIENT
  Sex: Female

DRUGS (1)
  1. ARIPIPRAZOLE [Suspect]
     Active Substance: ARIPIPRAZOLE
     Indication: Psychotic symptom
     Dosage: 20 MG, QD
     Route: 065

REACTIONS (4)
  - Aggression [Unknown]
  - Insomnia [Unknown]
  - Speech disorder [Unknown]
  - Product use in unapproved indication [Unknown]
